FAERS Safety Report 5484474-3 (Version None)
Quarter: 2007Q4

REPORT INFORMATION
  Report Type: 
  Country: None (occurrence: None)
  Receive Date: 20071009
  Receipt Date: 20070930
  Transmission Date: 20080405
  Serious: Yes (Other)
  Sender: FDA-Public Use
  Company Number: 2007332180

PATIENT
  Age: 17 Year
  Sex: Female
  Weight: 56.6996 kg

DRUGS (1)
  1. SUDAFED PE NASAL DECONGESTANT (PHENYLEPHRINE) [Suspect]
     Indication: SINUS CONGESTION
     Dosage: 1 TABLET 3 TIMES, ORAL
     Route: 048
     Dates: start: 20070928, end: 20070929

REACTIONS (3)
  - DYSPNOEA [None]
  - SWOLLEN TONGUE [None]
  - URTICARIA [None]
